FAERS Safety Report 11897754 (Version 1)
Quarter: 2016Q1

REPORT INFORMATION
  Report Type: Report from Study
  Country: US (occurrence: US)
  Receive Date: 20160108
  Receipt Date: 20160108
  Transmission Date: 20160526
  Serious: No
  Sender: FDA-Public Use
  Company Number: US-AMGEN-USASL2016000412

PATIENT
  Age: 7 Year
  Sex: Male

DRUGS (5)
  1. ENBREL [Suspect]
     Active Substance: ETANERCEPT
     Dosage: 0.5 ML, QWK
     Route: 065
     Dates: start: 201511
  2. ENBREL [Suspect]
     Active Substance: ETANERCEPT
     Dosage: 0.45 ML, QWK
     Route: 065
     Dates: start: 201510
  3. ENBREL [Suspect]
     Active Substance: ETANERCEPT
     Indication: JUVENILE IDIOPATHIC ARTHRITIS
     Dosage: 0.5 ML, QWK
     Route: 065
     Dates: start: 20140825
  4. ENBREL [Suspect]
     Active Substance: ETANERCEPT
     Dosage: 0.5 ML, QWK
     Route: 065
     Dates: start: 201509
  5. ENBREL [Suspect]
     Active Substance: ETANERCEPT
     Dosage: 0.6 ML, QWK
     Route: 065
     Dates: start: 201408

REACTIONS (2)
  - Peripheral swelling [Unknown]
  - Pain [Unknown]

NARRATIVE: CASE EVENT DATE: 201510
